FAERS Safety Report 4554137-7 (Version None)
Quarter: 2005Q1

REPORT INFORMATION
  Report Type: 
  Country: None (occurrence: None)
  Receive Date: 20050118
  Receipt Date: 20050112
  Transmission Date: 20050727
  Serious: Yes (Hospitalization)
  Sender: FDA-Public Use
  Company Number: US-MERCK-0501USA01409

PATIENT
  Age: 62 Year
  Sex: Male

DRUGS (8)
  1. FOSAMAX [Suspect]
     Route: 048
  2. INSULIN [Concomitant]
     Route: 065
  3. FUROSEMIDE [Concomitant]
     Route: 065
  4. WARFARIN [Concomitant]
     Route: 065
  5. ALPRAZOLAM [Concomitant]
     Route: 065
  6. DESIPRAMINE HYDROCHLORIDE [Concomitant]
     Route: 065
  7. DILTIAZEM HYDROCHLORIDE [Concomitant]
     Route: 065
  8. ALBUTEROL [Concomitant]
     Route: 065

REACTIONS (1)
  - LARGE INTESTINAL ULCER HAEMORRHAGE [None]
